FAERS Safety Report 18197317 (Version 1)
Quarter: 2020Q3

REPORT INFORMATION
  Report Type: Spontaneous
  Country: PL (occurrence: PL)
  Receive Date: 20200826
  Receipt Date: 20200826
  Transmission Date: 20201103
  Serious: Yes (Other)
  Sender: FDA-Public Use
  Company Number: PL-TEVA-2020-PL-1819529

PATIENT
  Age: 37 Year
  Sex: Female
  Weight: 62 kg

DRUGS (2)
  1. METHOTREXAT [Suspect]
     Active Substance: METHOTREXATE
     Indication: RHEUMATOID ARTHRITIS
     Dosage: 20 MG,
     Route: 048
     Dates: start: 20150810, end: 20150910
  2. METHOTREXAT [Suspect]
     Active Substance: METHOTREXATE
     Dosage: 20 MG
     Route: 058
     Dates: start: 20150917, end: 20160303

REACTIONS (2)
  - Transaminases increased [Unknown]
  - Nausea [Unknown]

NARRATIVE: CASE EVENT DATE: 20160129
